FAERS Safety Report 23082740 (Version 2)
Quarter: 2023Q4

REPORT INFORMATION
  Report Type: Spontaneous
  Country: ES (occurrence: ES)
  Receive Date: 20231019
  Receipt Date: 20231027
  Transmission Date: 20240109
  Serious: Yes (Death, Other)
  Sender: FDA-Public Use
  Company Number: None

PATIENT
  Age: 84 Year
  Sex: Female

DRUGS (4)
  1. LANTUS SOLOSTAR [Suspect]
     Active Substance: INSULIN GLARGINE
     Indication: Suicide attempt
     Dosage: 4 PENS SELF-TEST ATTEMPT
     Route: 058
     Dates: start: 20201014, end: 20201014
  2. APIDRA [Suspect]
     Active Substance: INSULIN GLULISINE
     Indication: Suicide attempt
     Dosage: 5 PAN AUTOLYTIC ATTEMPT
     Route: 058
     Dates: start: 20201014, end: 20201014
  3. LORMETAZEPAM [Suspect]
     Active Substance: LORMETAZEPAM
     Indication: Suicide attempt
     Dosage: UNKNOWN
     Route: 048
     Dates: start: 20201014, end: 20201014
  4. NALOXONE HYDROCHLORIDE\OXYCODONE HYDROCHLORIDE [Suspect]
     Active Substance: NALOXONE HYDROCHLORIDE\OXYCODONE HYDROCHLORIDE
     Indication: Suicide attempt
     Dosage: 4 DF, TOTAL
     Route: 048
     Dates: start: 20201014, end: 20201014

REACTIONS (1)
  - Hypoglycaemic coma [Fatal]

NARRATIVE: CASE EVENT DATE: 20201015
